FAERS Safety Report 22349332 (Version 1)
Quarter: 2023Q2

REPORT INFORMATION
  Report Type: Spontaneous
  Country: FR (occurrence: FR)
  Receive Date: 20230522
  Receipt Date: 20230522
  Transmission Date: 20230721
  Serious: Yes (Hospitalization)
  Sender: FDA-Public Use
  Company Number: None

PATIENT
  Age: 66 Year
  Sex: Female
  Weight: 48 kg

DRUGS (5)
  1. OXALIPLATIN [Suspect]
     Active Substance: OXALIPLATIN
     Indication: Pancreatic carcinoma
     Dosage: C5
     Route: 065
     Dates: start: 20230120, end: 20230404
  2. FLUOROURACIL [Concomitant]
     Active Substance: FLUOROURACIL
     Indication: Pancreatic carcinoma
     Dosage: C5
     Route: 065
     Dates: start: 20230120
  3. ONDANSETRON [Concomitant]
     Active Substance: ONDANSETRON
     Indication: Pancreatic carcinoma
     Dosage: C5
     Route: 065
     Dates: start: 20230120
  4. APREPITANT [Concomitant]
     Active Substance: APREPITANT
     Indication: Pancreatic carcinoma
     Route: 065
     Dates: start: 20230120
  5. METHYLPREDNISOLONE ACETATE [Concomitant]
     Active Substance: METHYLPREDNISOLONE ACETATE
     Indication: Pancreatic carcinoma
     Dosage: C5
     Route: 065
     Dates: start: 20230120

REACTIONS (2)
  - Muscle spasms [Recovered/Resolved]
  - Paraesthesia [Recovered/Resolved]

NARRATIVE: CASE EVENT DATE: 20230404
